FAERS Safety Report 26082234 (Version 1)
Quarter: 2025Q4

REPORT INFORMATION
  Report Type: Report from Study
  Country: GB (occurrence: GB)
  Receive Date: 20251124
  Receipt Date: 20251124
  Transmission Date: 20260118
  Serious: Yes (Other)
  Sender: JOHNSON AND JOHNSON
  Company Number: GB-JNJFOC-20251162881

PATIENT
  Age: 63 Year
  Sex: Female

DRUGS (1)
  1. SIMPONI [Suspect]
     Active Substance: GOLIMUMAB
     Indication: Spinal osteoarthritis
     Dosage: STRENGTH: 50 MG/0.5 ML
     Route: 058

REACTIONS (5)
  - Sepsis [Not Recovered/Not Resolved]
  - Rib fracture [Not Recovered/Not Resolved]
  - Accident [Unknown]
  - Skin ulcer [Not Recovered/Not Resolved]
  - Off label use [Unknown]

NARRATIVE: CASE EVENT DATE: 20251001
